FAERS Safety Report 5057554-4 (Version None)
Quarter: 2006Q3

REPORT INFORMATION
  Report Type: 
  Country: None (occurrence: None)
  Receive Date: 20060721
  Receipt Date: 20051114
  Transmission Date: 20061208
  Serious: No
  Sender: FDA-Public Use
  Company Number: US-GLAXOSMITHKLINE-A0582949A

PATIENT

DRUGS (6)
  1. AVANDIA [Suspect]
     Indication: DRUG USE FOR UNKNOWN INDICATION
     Dosage: 4MG UNKNOWN
     Route: 048
     Dates: start: 20050616
  2. HYZAAR [Concomitant]
  3. PAROXETINE HCL [Concomitant]
     Dates: start: 20050428
  4. METFORMIN HYDROCHLORIDE [Concomitant]
     Route: 048
  5. FAMOTIDINE [Concomitant]
  6. LOVASTATIN [Concomitant]

REACTIONS (2)
  - GASTROINTESTINAL PAIN [None]
  - LIVER DISORDER [None]
